FAERS Safety Report 6363607-0 (Version None)
Quarter: 2009Q3

REPORT INFORMATION
  Report Type: 
  Country: None (occurrence: None)
  Receive Date: 20090919
  Receipt Date: 20090701
  Transmission Date: 20100115
  Serious: No
  Sender: FDA-Public Use
  Company Number: US-ABBOTT-09P-163-0583046-00

PATIENT
  Sex: Female

DRUGS (2)
  1. HUMIRA [Suspect]
     Indication: PSORIATIC ARTHROPATHY
     Dosage: DAY 1
     Dates: start: 20090624
  2. HUMIRA [Suspect]
     Indication: PSORIASIS

REACTIONS (1)
  - VIRAL INFECTION [None]
